FAERS Safety Report 9255684 (Version 1)
Quarter: 2013Q2

REPORT INFORMATION
  Report Type: Spontaneous
  Country: ES (occurrence: ES)
  Receive Date: 20130425
  Receipt Date: 20130425
  Transmission Date: 20140414
  Serious: Yes (Other)
  Sender: FDA-Public Use
  Company Number: PHHY2013ES039495

PATIENT
  Age: 77 Year
  Sex: Female

DRUGS (3)
  1. ATORVASTATIN [Suspect]
     Dosage: 20 MG, PER DAY
  2. LEVETIRACETAM [Concomitant]
     Dosage: 2 G, PER DAY
  3. CARBAMAZEPINE [Concomitant]
     Dosage: 200 MG, PER DAY

REACTIONS (4)
  - Interstitial granulomatous dermatitis [Not Recovered/Not Resolved]
  - Skin plaque [Not Recovered/Not Resolved]
  - Skin lesion [Not Recovered/Not Resolved]
  - Pruritus [Not Recovered/Not Resolved]
